FAERS Safety Report 19087239 (Version 2)
Quarter: 2021Q2

REPORT INFORMATION
  Report Type: Spontaneous
  Country: US (occurrence: US)
  Receive Date: 20210402
  Receipt Date: 20210512
  Transmission Date: 20210717
  Serious: Yes (Life-Threatening, Hospitalization, Other)
  Sender: FDA-Public Use
  Company Number: US-ALEMBIC PHARMACUETICALS LIMITED-2021SCAL000161

PATIENT

DRUGS (1)
  1. VENLAFAXINE [Suspect]
     Active Substance: VENLAFAXINE HYDROCHLORIDE
     Indication: PRODUCT USED FOR UNKNOWN INDICATION
     Dosage: OVERDOSE OF 1125MG
     Route: 065

REACTIONS (10)
  - Ischaemic hepatitis [Unknown]
  - Hypoxic-ischaemic encephalopathy [Recovering/Resolving]
  - Cardiac failure [Recovered/Resolved]
  - Status epilepticus [Recovering/Resolving]
  - Intentional overdose [Recovering/Resolving]
  - Acute kidney injury [Unknown]
  - Brain oedema [Recovering/Resolving]
  - Cardiomyopathy [Recovered/Resolved]
  - Pupil fixed [Recovered/Resolved]
  - Ventricular tachycardia [Recovered/Resolved]
